FAERS Safety Report 18446287 (Version 1)
Quarter: 2020Q4

REPORT INFORMATION
  Report Type: Report from Study
  Country: CA (occurrence: CA)
  Receive Date: 20201030
  Receipt Date: 20201030
  Transmission Date: 20210114
  Serious: Yes (Death, Hospitalization)
  Sender: FDA-Public Use
  Company Number: CA-JNJFOC-20201034330

PATIENT
  Age: 78 Year
  Sex: Female

DRUGS (1)
  1. REMICADE [Suspect]
     Active Substance: INFLIXIMAB
     Indication: CROHN^S DISEASE
     Route: 042
     Dates: start: 20131023

REACTIONS (2)
  - Neoplasm malignant [Fatal]
  - Gastrointestinal carcinoma [Fatal]

NARRATIVE: CASE EVENT DATE: 20201012
